FAERS Safety Report 23222161 (Version 3)
Quarter: 2023Q4

REPORT INFORMATION
  Report Type: Spontaneous
  Country: CZ (occurrence: CZ)
  Receive Date: 20231123
  Receipt Date: 20231212
  Transmission Date: 20240109
  Serious: Yes (Death, Life-Threatening, Hospitalization, Disabling, Other)
  Sender: FDA-Public Use
  Company Number: None

PATIENT
  Age: 68 Year
  Sex: Female
  Weight: 66 kg

DRUGS (12)
  1. THYMOGLOBULINE [Suspect]
     Active Substance: LAPINE T-LYMPHOCYTE IMMUNE GLOBULIN
     Indication: Prophylaxis against graft versus host disease
     Dosage: 200 MG(THYMOGLOBULIN 3MG/KG - 200 MG DILUTED WITH 500ML OF SALINE F1/1 FOR 12 HOURS OF INTRAVENOUS I
     Route: 041
     Dates: start: 20230307, end: 20230308
  2. MYCOPHENOLATE MOFETIL [Concomitant]
     Active Substance: MYCOPHENOLATE MOFETIL
     Indication: Graft versus host disease
     Dosage: UNK
  3. FLUDARABINE PHOSPHATE [Concomitant]
     Active Substance: FLUDARABINE PHOSPHATE
     Dosage: UNK
  4. TREOSULFAN [Concomitant]
     Active Substance: TREOSULFAN
     Dosage: UNK
  5. OSELTAMIVIR [Concomitant]
     Active Substance: OSELTAMIVIR
     Indication: Anti-infective therapy
     Dosage: UNK
  6. VALACYCLOVIR HYDROCHLORIDE [Concomitant]
     Active Substance: VALACYCLOVIR HYDROCHLORIDE
     Indication: Anti-infective therapy
     Dosage: UNK
  7. CIPROFLOXACIN [Concomitant]
     Active Substance: CIPROFLOXACIN
     Indication: Anti-infective therapy
     Dosage: UNK
  8. FLUCONAZOLE [Concomitant]
     Active Substance: FLUCONAZOLE
     Indication: Anti-infective therapy
     Dosage: UNK
  9. TACROLIMUS [Concomitant]
     Active Substance: TACROLIMUS
     Indication: Immunosuppressant drug therapy
     Dosage: UNK
  10. TACROLIMUS [Concomitant]
     Active Substance: TACROLIMUS
     Indication: Graft versus host disease
  11. SULFAMETHOXAZOLE\TRIMETHOPRIM [Concomitant]
     Active Substance: SULFAMETHOXAZOLE\TRIMETHOPRIM
     Indication: Anti-infective therapy
     Dosage: UNK
  12. LAMIVUDINE [Concomitant]
     Active Substance: LAMIVUDINE
     Indication: Anti-infective therapy
     Dosage: UNK

REACTIONS (6)
  - Acute graft versus host disease [Fatal]
  - Acute graft versus host disease in intestine [Fatal]
  - Drug ineffective [Fatal]
  - Posterior reversible encephalopathy syndrome [Recovered/Resolved with Sequelae]
  - Toxic encephalopathy [Recovered/Resolved with Sequelae]
  - Pyrexia [Unknown]

NARRATIVE: CASE EVENT DATE: 20230101
